FAERS Safety Report 7582804-X (Version None)
Quarter: 2011Q2

REPORT INFORMATION
  Report Type: 
  Country: None (occurrence: None)
  Receive Date: 20110630
  Receipt Date: 20110615
  Transmission Date: 20111010
  Serious: Yes (Hospitalization, Other)
  Sender: FDA-Public Use
  Company Number: US-BAYER-201036620NA

PATIENT
  Age: 48 Year
  Sex: Female
  Weight: 104.31 kg

DRUGS (15)
  1. ZOLPIDEM [Concomitant]
     Indication: SLEEP DISORDER THERAPY
     Dosage: UNK UNK, PRN
  2. SINGULAIR [Concomitant]
     Indication: MULTIPLE ALLERGIES
     Dosage: UNK UNK, PRN
  3. YAZ [Suspect]
     Indication: CONTRACEPTION
  4. ATENOLOL [Concomitant]
     Indication: HEART RATE INCREASED
  5. DEPO-PROVERA [Concomitant]
     Indication: MENORRHAGIA
  6. YASMIN [Suspect]
     Indication: MENORRHAGIA
  7. TYLENOL-500 [Concomitant]
     Indication: HEADACHE
     Dosage: UNK UNK, PRN
  8. OTHER ANALGESICS AND ANTIPYRETICS [Concomitant]
     Indication: HEADACHE
     Dosage: UNK UNK, PRN
  9. DEPO-PROVERA [Concomitant]
     Indication: CONTRACEPTION
  10. NAPROSYN [Concomitant]
     Indication: INFLAMMATION
     Dosage: UNK UNK, PRN
  11. YAZ [Suspect]
     Indication: MENORRHAGIA
  12. YASMIN [Suspect]
     Indication: CONTRACEPTION
     Dosage: UNK
     Dates: start: 20051001, end: 20060101
  13. DIFLUCAN [Concomitant]
     Indication: FUNGAL INFECTION
  14. CLONAZEPAM [Concomitant]
     Indication: ANXIETY
     Dosage: UNK UNK, PRN
  15. CENTRUM [Concomitant]
     Indication: VITAMIN SUPPLEMENTATION
     Dosage: UNK UNK, QD

REACTIONS (8)
  - MENTAL DISORDER [None]
  - PULMONARY EMBOLISM [None]
  - PERIPHERAL EMBOLISM [None]
  - FEAR [None]
  - DEEP VEIN THROMBOSIS [None]
  - OEDEMA PERIPHERAL [None]
  - PAIN [None]
  - VEIN DISORDER [None]
